FAERS Safety Report 6703092-X (Version None)
Quarter: 2010Q2

REPORT INFORMATION
  Report Type: 
  Country: None (occurrence: None)
  Receive Date: 20100429
  Receipt Date: 20100426
  Transmission Date: 20101027
  Serious: Yes (Hospitalization, Other)
  Sender: FDA-Public Use
  Company Number: FR-BRISTOL-MYERS SQUIBB COMPANY-13640164

PATIENT
  Age: 51 Year
  Sex: Female

DRUGS (2)
  1. TAXOL [Suspect]
     Indication: OVARIAN EPITHELIAL CANCER
     Route: 042
     Dates: start: 20051025, end: 20060228
  2. CARBOPLATIN [Suspect]
     Indication: OVARIAN EPITHELIAL CANCER
     Route: 042
     Dates: start: 20051025, end: 20060228

REACTIONS (4)
  - OBLITERATIVE BRONCHIOLITIS [None]
  - PARAESTHESIA [None]
  - RESPIRATORY DISORDER [None]
  - RESPIRATORY FAILURE [None]
